FAERS Safety Report 6709106-5 (Version None)
Quarter: 2010Q2

REPORT INFORMATION
  Report Type: 
  Country: None (occurrence: None)
  Receive Date: 20100504
  Receipt Date: 20100427
  Transmission Date: 20101027
  Serious: Yes (Death, Other)
  Sender: FDA-Public Use
  Company Number: CA-CELGENEUS-028-21880-10010293

PATIENT
  Sex: Male

DRUGS (1)
  1. REVLIMID [Suspect]
     Route: 048
     Dates: start: 20091216

REACTIONS (3)
  - CARDIAC FAILURE CONGESTIVE [None]
  - MULTIPLE MYELOMA [None]
  - RESPIRATORY FAILURE [None]
